FAERS Safety Report 13211538 (Version 1)
Quarter: 2017Q1

REPORT INFORMATION
  Report Type: Spontaneous
  Country: US (occurrence: US)
  Receive Date: 20170209
  Receipt Date: 20170209
  Transmission Date: 20170428
  Serious: No
  Sender: FDA-Public Use
  Company Number: US-ALLERGAN-1656251US

PATIENT
  Sex: Female

DRUGS (1)
  1. BOTOX [Suspect]
     Active Substance: ONABOTULINUMTOXINA
     Indication: HEADACHE
     Dosage: 100 UNITS, SINGLE
     Route: 030
     Dates: start: 20160406, end: 20160406

REACTIONS (3)
  - Malaise [Unknown]
  - Pain [Unknown]
  - Headache [Unknown]
